FAERS Safety Report 8394083-4 (Version None)
Quarter: 2012Q2

REPORT INFORMATION
  Report Type: 
  Country: None (occurrence: None)
  Receive Date: 20120530
  Receipt Date: 20120519
  Transmission Date: 20120825
  Serious: Yes (Other)
  Sender: FDA-Public Use
  Company Number: CA-JNJFOC-20120516931

PATIENT
  Sex: Female

DRUGS (1)
  1. REMICADE [Suspect]
     Indication: PRODUCT USED FOR UNKNOWN INDICATION
     Route: 042
     Dates: start: 20120118, end: 20120229

REACTIONS (4)
  - OCULAR HYPERAEMIA [None]
  - PARANASAL SINUS HYPERSECRETION [None]
  - THROMBOSIS [None]
  - NASOPHARYNGITIS [None]
